FAERS Safety Report 8594134-8 (Version None)
Quarter: 2012Q3

REPORT INFORMATION
  Report Type: 
  Country: None (occurrence: None)
  Receive Date: 20120814
  Receipt Date: 20120807
  Transmission Date: 20120928
  Serious: Yes (Other)
  Sender: FDA-Public Use
  Company Number: PHHY2012BR043637

PATIENT
  Sex: Male

DRUGS (3)
  1. PREDNISONE TAB [Concomitant]
     Dosage: UNK UKN, UNK
  2. CYCLOSPORINE [Suspect]
     Dosage: UNK UKN, UNK
  3. MYFORTIC [Suspect]

REACTIONS (7)
  - GASTROINTESTINAL MOTILITY DISORDER [None]
  - DEPRESSION [None]
  - NAUSEA [None]
  - GASTROINTESTINAL INJURY [None]
  - MEMORY IMPAIRMENT [None]
  - ABDOMINAL DISCOMFORT [None]
  - DYSPEPSIA [None]
